FAERS Safety Report 21698036 (Version 1)
Quarter: 2022Q4

REPORT INFORMATION
  Report Type: Report from Study
  Country: US (occurrence: US)
  Receive Date: 20221208
  Receipt Date: 20221208
  Transmission Date: 20230112
  Serious: No
  Sender: FDA-Public Use
  Company Number: US-ABBVIE-4182715

PATIENT
  Sex: Male

DRUGS (2)
  1. HUMIRA [Suspect]
     Active Substance: ADALIMUMAB
     Indication: Crohn^s disease
     Dosage: DAY 1
     Route: 058
     Dates: start: 20211203, end: 20211203
  2. HUMIRA [Suspect]
     Active Substance: ADALIMUMAB
     Dosage: DAY 15, STRENGTH-40 MG
     Route: 058
     Dates: start: 20211231

REACTIONS (7)
  - Abdominal pain [Unknown]
  - Fatigue [Unknown]
  - Constipation [Unknown]
  - Hypersensitivity [Unknown]
  - Frequent bowel movements [Unknown]
  - Gastrointestinal sounds abnormal [Unknown]
  - Insomnia [Unknown]
